FAERS Safety Report 20711754 (Version 1)
Quarter: 2022Q2

REPORT INFORMATION
  Report Type: Spontaneous
  Country: US (occurrence: US)
  Receive Date: 20220414
  Receipt Date: 20220414
  Transmission Date: 20220721
  Serious: Yes (Other)
  Sender: FDA-Public Use
  Company Number: US-AMNEAL PHARMACEUTICALS-2021-AMRX-02824

PATIENT
  Sex: Female

DRUGS (2)
  1. BUPRENORPHINE AND NALOXONE [Suspect]
     Active Substance: BUPRENORPHINE HYDROCHLORIDE\NALOXONE HYDROCHLORIDE
     Indication: Product used for unknown indication
     Dosage: 4 MILLIGRAM, QD, 2MG IN MORNING AND 2MG AT NIGHT
     Route: 060
     Dates: start: 20210708
  2. GABAPENTIN [Suspect]
     Active Substance: GABAPENTIN
     Indication: Product used for unknown indication
     Dosage: UNK
     Route: 065
     Dates: start: 20210708, end: 20210709

REACTIONS (10)
  - Loss of consciousness [Recovered/Resolved]
  - Peripheral swelling [Recovered/Resolved]
  - Malaise [Recovered/Resolved]
  - Hallucination, auditory [Recovered/Resolved]
  - Confusional state [Recovered/Resolved]
  - Somnolence [Recovered/Resolved]
  - Miosis [Recovered/Resolved]
  - Feeling drunk [Recovered/Resolved]
  - Fatigue [Recovered/Resolved]
  - Dizziness [Recovered/Resolved]

NARRATIVE: CASE EVENT DATE: 20210708
